FAERS Safety Report 14608905 (Version 1)
Quarter: 2018Q1

REPORT INFORMATION
  Report Type: Spontaneous
  Country: US (occurrence: US)
  Receive Date: 20180306
  Receipt Date: 20180306
  Transmission Date: 20180509
  Serious: Yes (Hospitalization, Disabling)
  Sender: FDA-Public Use
  Company Number: None

PATIENT
  Age: 37 Year
  Sex: Male
  Weight: 101.25 kg

DRUGS (3)
  1. LATUDA [Suspect]
     Active Substance: LURASIDONE HYDROCHLORIDE
     Route: 048
     Dates: start: 20141201, end: 20170101
  2. KLONOPIN [Suspect]
     Active Substance: CLONAZEPAM
  3. ZYPREXA [Suspect]
     Active Substance: OLANZAPINE
     Route: 048
     Dates: start: 20140513

REACTIONS (5)
  - Headache [None]
  - Unevaluable event [None]
  - Dementia [None]
  - Hypoacusis [None]
  - Visual impairment [None]

NARRATIVE: CASE EVENT DATE: 20160901
